FAERS Safety Report 23864366 (Version 1)
Quarter: 2024Q2

REPORT INFORMATION
  Report Type: Spontaneous
  Country: US (occurrence: US)
  Receive Date: 20240516
  Receipt Date: 20240516
  Transmission Date: 20240716
  Serious: No
  Sender: FDA-Public Use
  Company Number: USA--2023-US-000535

PATIENT
  Sex: Female

DRUGS (1)
  1. LATANOPROST [Suspect]
     Active Substance: LATANOPROST
     Dates: start: 20200101

REACTIONS (2)
  - Visual impairment [Unknown]
  - Eye discharge [Unknown]

NARRATIVE: CASE EVENT DATE: 20230501
